FAERS Safety Report 4412601-5 (Version None)
Quarter: 2004Q2

REPORT INFORMATION
  Report Type: 
  Country: None (occurrence: None)
  Receive Date: 20040630
  Receipt Date: 20040309
  Transmission Date: 20050107
  Serious: No
  Sender: FDA-Public Use
  Company Number: 04P-163-0252816-00

PATIENT
  Age: 69 Year
  Sex: Male

DRUGS (2)
  1. HUMIRA [Suspect]
     Dosage: 40 MG, SUBCUTANEOUS
     Route: 058
  2. STEROIDS [Concomitant]

REACTIONS (1)
  - DRUG INEFFECTIVE [None]
